FAERS Safety Report 7438151-X (Version None)
Quarter: 2011Q2

REPORT INFORMATION
  Report Type: 
  Country: None (occurrence: None)
  Receive Date: 20110421
  Receipt Date: 20110421
  Transmission Date: 20111010
  Serious: Yes (Other)
  Sender: FDA-Public Use
  Company Number: None

PATIENT
  Sex: Female
  Weight: 68.0396 kg

DRUGS (2)
  1. LEVAQUIN [Suspect]
     Indication: BRONCHITIS
     Dosage: 1 PILL ONCE DAILY
     Dates: start: 20110319, end: 20110321
  2. HYDROCODONE BITARTRATE AND CHLORPHENIRAMINE MALEATE POLISTIREX [Suspect]
     Indication: BRONCHITIS
     Dosage: 1 TSP ONCE DAILY
     Dates: start: 20110318, end: 20110325

REACTIONS (3)
  - PAIN IN EXTREMITY [None]
  - NAUSEA [None]
  - DIZZINESS [None]
